FAERS Safety Report 7371983-5 (Version None)
Quarter: 2011Q1

REPORT INFORMATION
  Report Type: 
  Country: None (occurrence: None)
  Receive Date: 20110322
  Receipt Date: 20110322
  Transmission Date: 20110831
  Serious: Yes (Hospitalization)
  Sender: FDA-Public Use
  Company Number: None

PATIENT
  Sex: Female
  Weight: 60.2 kg

DRUGS (4)
  1. VINCRISTINE SULFATE [Suspect]
     Dosage: 50 MG
  2. LOMUSTINE (CCNU) [Suspect]
     Dosage: 670 MG
  3. CISPLATIN [Suspect]
     Dosage: 617 MG
  4. CYCLOPHOSPHAMIDE [Suspect]
     Dosage: 5900 MG

REACTIONS (3)
  - HAEMOGLOBIN DECREASED [None]
  - NEUTROPHIL COUNT DECREASED [None]
  - PLATELET COUNT DECREASED [None]
